FAERS Safety Report 10191300 (Version 1)
Quarter: 2014Q2

REPORT INFORMATION
  Report Type: Spontaneous
  Country: US (occurrence: US)
  Receive Date: 20140523
  Receipt Date: 20140523
  Transmission Date: 20141212
  Serious: Yes (Hospitalization)
  Sender: FDA-Public Use
  Company Number: US-MERCK-1405USA010490

PATIENT
  Age: 80 Year
  Sex: Female

DRUGS (2)
  1. JANUVIA [Suspect]
     Indication: DIABETES MELLITUS
     Dosage: UNK
     Route: 048
     Dates: start: 201305, end: 201311
  2. JANUVIA [Suspect]
     Indication: DIABETES MELLITUS
     Dosage: TWO 25 MG TABLETS A DAY
     Route: 048
     Dates: start: 201311

REACTIONS (2)
  - Renal impairment [Unknown]
  - Urine odour abnormal [Unknown]
